FAERS Safety Report 16018763 (Version 4)
Quarter: 2019Q1

REPORT INFORMATION
  Report Type: Spontaneous
  Country: PL (occurrence: PL)
  Receive Date: 20190228
  Receipt Date: 20190326
  Transmission Date: 20190418
  Serious: Yes (Other)
  Sender: FDA-Public Use
  Company Number: PL-ROCHE-2274631

PATIENT
  Age: 65 Year
  Sex: Female

DRUGS (18)
  1. HYDROCHLOROTHIAZIDE. [Suspect]
     Active Substance: HYDROCHLOROTHIAZIDE
     Indication: SOMATIC SYMPTOM DISORDER
     Route: 065
  2. VENLAFAXINE [Suspect]
     Active Substance: VENLAFAXINE HYDROCHLORIDE
     Indication: ANXIETY
     Dosage: UP TO 300 MG/DAY; DOSES WERE GRADUALLY REDUCED UNTIL DISCONTINUATION
     Route: 065
  3. ALPRAZOLAM. [Suspect]
     Active Substance: ALPRAZOLAM
     Indication: ANXIETY
     Route: 065
  4. PAROXETINE. [Suspect]
     Active Substance: PAROXETINE
     Indication: ANXIETY
     Dosage: UP TO 40 MG/DAY
     Route: 065
  5. ESOMEPRAZOLE. [Suspect]
     Active Substance: ESOMEPRAZOLE MAGNESIUM
     Indication: SOMATIC SYMPTOM DISORDER
     Route: 065
  6. BUPROPION. [Concomitant]
     Active Substance: BUPROPION
     Dosage: UP TO 300MG/DAY
     Route: 065
  7. MONTELUKAST [Suspect]
     Active Substance: MONTELUKAST SODIUM
     Indication: SOMATIC SYMPTOM DISORDER
     Route: 065
  8. CLOBETASOL [Suspect]
     Active Substance: CLOBETASOL
     Indication: SOMATIC SYMPTOM DISORDER
     Route: 065
  9. VALSARTAN. [Suspect]
     Active Substance: VALSARTAN
     Indication: SOMATIC SYMPTOM DISORDER
     Route: 065
  10. MIDAZOLAM [Suspect]
     Active Substance: MIDAZOLAM HYDROCHLORIDE
     Indication: ANXIETY
     Route: 065
  11. SALMETEROL [Suspect]
     Active Substance: SALMETEROL
     Indication: SOMATIC SYMPTOM DISORDER
     Route: 065
  12. QUETIAPINE. [Suspect]
     Active Substance: QUETIAPINE
     Indication: ANXIETY
     Dosage: UP TO 200 MG/DAY
     Route: 065
  13. CLONAZEPAM. [Suspect]
     Active Substance: CLONAZEPAM
     Indication: ANXIETY
     Route: 065
  14. NEBIVOLOL. [Suspect]
     Active Substance: NEBIVOLOL
     Indication: SOMATIC SYMPTOM DISORDER
     Route: 065
  15. OLANZAPINE. [Suspect]
     Active Substance: OLANZAPINE
     Indication: ANXIETY
     Route: 065
  16. ZOLPIDEM [Suspect]
     Active Substance: ZOLPIDEM\ZOLPIDEM TARTRATE
     Indication: ANXIETY
     Dosage: SOPORIFICALLY
     Route: 065
  17. LAMOTRIGINE. [Suspect]
     Active Substance: LAMOTRIGINE
     Indication: ANXIETY
     Dosage: GRADUALLY INCREASED DOSES UP TO 200 MG/DAY
     Route: 065
  18. FLUTICASONE. [Suspect]
     Active Substance: FLUTICASONE
     Indication: SOMATIC SYMPTOM DISORDER
     Route: 065

REACTIONS (2)
  - Drug-induced liver injury [Recovered/Resolved]
  - Drug ineffective [Unknown]
